FAERS Safety Report 23702520 (Version 1)
Quarter: 2024Q2

REPORT INFORMATION
  Report Type: Report from Study
  Country: CN (occurrence: CN)
  Receive Date: 20240403
  Receipt Date: 20240403
  Transmission Date: 20240716
  Serious: Yes (Other)
  Sender: FDA-Public Use
  Company Number: CN-JNJFOC-20231230453

PATIENT

DRUGS (1)
  1. DARZALEX [Suspect]
     Active Substance: DARATUMUMAB
     Indication: Plasma cell myeloma
     Dosage: 8 WEEKS
     Route: 065

REACTIONS (12)
  - Pneumonia klebsiella [Unknown]
  - Stenotrophomonas maltophilia pneumonia [Unknown]
  - Candida pneumonia [Unknown]
  - Coronavirus pneumonia [Unknown]
  - Thrombocytopenia [Unknown]
  - Leukopenia [Unknown]
  - Hypogammaglobulinaemia [Unknown]
  - Lymphopenia [Unknown]
  - Haemoglobin decreased [Unknown]
  - Coronavirus infection [Unknown]
  - Epstein-Barr virus infection [Unknown]
  - Infusion related reaction [Unknown]
